FAERS Safety Report 4836428-5 (Version None)
Quarter: 2005Q4

REPORT INFORMATION
  Report Type: 
  Country: None (occurrence: None)
  Receive Date: 20051123
  Receipt Date: 20051111
  Transmission Date: 20060501
  Serious: Yes (Hospitalization)
  Sender: FDA-Public Use
  Company Number: IT-JNJFOC-20051105157

PATIENT
  Age: 55 Year
  Sex: Male

DRUGS (1)
  1. TRAMADOL HCL [Suspect]
     Indication: ARTHRITIS
     Route: 048
     Dates: start: 20051001, end: 20051002

REACTIONS (4)
  - DIZZINESS [None]
  - MUSCULAR WEAKNESS [None]
  - NAUSEA [None]
  - SPEECH DISORDER [None]
